FAERS Safety Report 12370498 (Version 2)
Quarter: 2016Q2

REPORT INFORMATION
  Report Type: Spontaneous
  Country: JP (occurrence: JP)
  Receive Date: 20160516
  Receipt Date: 20160519
  Transmission Date: 20160815
  Serious: Yes (Hospitalization)
  Sender: FDA-Public Use
  Company Number: PHJP2016JP011728

PATIENT
  Sex: Female
  Weight: 61 kg

DRUGS (3)
  1. BENIDIPINE [Concomitant]
     Active Substance: BENIDIPINE
     Indication: HYPERTENSION
     Dosage: UNK
     Route: 048
  2. ATORVASTATIN [Concomitant]
     Active Substance: ATORVASTATIN
     Indication: DYSLIPIDAEMIA
     Dosage: UNK
     Route: 048
  3. VALSARTAN. [Suspect]
     Active Substance: VALSARTAN
     Indication: BLOOD PRESSURE INCREASED
     Dosage: 40 MG, UNK
     Route: 048

REACTIONS (8)
  - Diarrhoea [Recovered/Resolved]
  - Normochromic normocytic anaemia [Recovered/Resolved]
  - Oedema peripheral [Unknown]
  - Protein-losing gastroenteropathy [Recovered/Resolved]
  - Inflammation [Recovered/Resolved]
  - Hypoalbuminaemia [Recovered/Resolved]
  - Gastroenteritis [Recovered/Resolved]
  - Frequent bowel movements [Recovered/Resolved]
